FAERS Safety Report 4739135-2 (Version None)
Quarter: 2005Q3

REPORT INFORMATION
  Report Type: 
  Country: None (occurrence: None)
  Receive Date: 20050810
  Receipt Date: 20050422
  Transmission Date: 20060218
  Serious: No
  Sender: FDA-Public Use
  Company Number: US-GLAXOSMITHKLINE-A0555368A

PATIENT
  Age: 48 Year
  Sex: Female

DRUGS (3)
  1. PAXIL CR [Suspect]
     Indication: DEPRESSION
     Dosage: 12.5MG PER DAY
     Route: 048
     Dates: start: 20030101, end: 20050422
  2. WELLBUTRIN [Suspect]
     Route: 065
     Dates: start: 20010101, end: 20010101
  3. LIPITOR [Concomitant]

REACTIONS (6)
  - DISTRACTIBILITY [None]
  - DISTURBANCE IN ATTENTION [None]
  - IRRITABILITY [None]
  - MOOD ALTERED [None]
  - PHARMACEUTICAL PRODUCT COMPLAINT [None]
  - THERAPEUTIC RESPONSE UNEXPECTED [None]
